FAERS Safety Report 15651676 (Version 1)
Quarter: 2018Q4

REPORT INFORMATION
  Report Type: Spontaneous
  Country: US (occurrence: US)
  Receive Date: 20181123
  Receipt Date: 20181123
  Transmission Date: 20190205
  Serious: Yes (Other)
  Sender: FDA-Public Use
  Company Number: US-INSMED, INC.-US-INS-18-00241

PATIENT
  Sex: Female

DRUGS (2)
  1. ARIKAYCE [Suspect]
     Active Substance: AMIKACIN
     Indication: PRODUCT USED FOR UNKNOWN INDICATION
     Route: 055
  2. LAMIRA NEBULIZER SYSTEM (DEVICE) [Suspect]
     Active Substance: DEVICE

REACTIONS (5)
  - Seizure [Unknown]
  - Memory impairment [Unknown]
  - Staphylococcal infection [Unknown]
  - Dysphonia [Unknown]
  - Feeling abnormal [Unknown]
